FAERS Safety Report 9114174 (Version 1)
Quarter: 2013Q1

REPORT INFORMATION
  Report Type: Spontaneous
  Country: US (occurrence: US)
  Receive Date: 20130129
  Receipt Date: 20130129
  Transmission Date: 20140127
  Serious: No
  Sender: FDA-Public Use
  Company Number: US-PFIZER INC-2013032037

PATIENT
  Sex: Male

DRUGS (6)
  1. SUTENT [Suspect]
     Indication: METASTATIC RENAL CELL CARCINOMA
     Dosage: 50 MG, 1X/DAY (DAILY)
     Dates: start: 201301
  2. NORVASC [Concomitant]
     Dosage: UNK
  3. METFORMIN [Concomitant]
     Dosage: UNK
  4. ZANTAC [Concomitant]
     Dosage: UNK
  5. PHENERGAN [Concomitant]
     Dosage: UNK
  6. LOVENOX [Concomitant]
     Indication: THROMBOSIS

REACTIONS (3)
  - Nausea [Unknown]
  - Ageusia [Unknown]
  - Abdominal pain upper [Unknown]
